FAERS Safety Report 9421808 (Version 1)
Quarter: 2013Q3

REPORT INFORMATION
  Report Type: Spontaneous
  Country: US (occurrence: None)
  Receive Date: 20130724
  Receipt Date: 20130724
  Transmission Date: 20140515
  Serious: No
  Sender: FDA-Public Use
  Company Number: None

PATIENT
  Age: 66 Year
  Sex: Female

DRUGS (1)
  1. MYCOPHENOLATE [Suspect]
     Indication: PEMPHIGOID
     Route: 048
     Dates: start: 20120601, end: 201303

REACTIONS (1)
  - Rash [None]
